FAERS Safety Report 19646537 (Version 1)
Quarter: 2021Q3

REPORT INFORMATION
  Report Type: Spontaneous
  Country: GB (occurrence: GB)
  Receive Date: 20210802
  Receipt Date: 20210802
  Transmission Date: 20211014
  Serious: Yes (Other)
  Sender: FDA-Public Use
  Company Number: GB-DEXPHARM-20211207

PATIENT
  Age: 87 Year
  Sex: Female

DRUGS (8)
  1. OMEPRAZOLE. [Suspect]
     Active Substance: OMEPRAZOLE
     Indication: GASTROOESOPHAGEAL REFLUX DISEASE
     Dosage: 20MG OD
     Route: 050
  2. DIGOXIN. [Concomitant]
     Active Substance: DIGOXIN
     Indication: ILL-DEFINED DISORDER
  3. EDOXABAN [Concomitant]
     Active Substance: EDOXABAN TOSYLATE
     Indication: ILL-DEFINED DISORDER
  4. MEMANTINE HYDROCHLORIDE. [Concomitant]
     Active Substance: MEMANTINE HYDROCHLORIDE
     Indication: ILL-DEFINED DISORDER
  5. SERTRALINE [Suspect]
     Active Substance: SERTRALINE HYDROCHLORIDE
     Indication: ANXIETY
     Dosage: 75MG DAILY
     Route: 050
     Dates: start: 20210115, end: 20210118
  6. OXYBUTYNIN HYDROCHLORIDE [Concomitant]
     Active Substance: OXYBUTYNIN CHLORIDE
     Indication: ILL-DEFINED DISORDER
  7. VENLAFAXINE [Concomitant]
     Active Substance: VENLAFAXINE HYDROCHLORIDE
     Indication: ILL-DEFINED DISORDER
  8. GABAPENTIN. [Concomitant]
     Active Substance: GABAPENTIN
     Indication: ILL-DEFINED DISORDER

REACTIONS (1)
  - Hyponatraemia [Recovered/Resolved]
